FAERS Safety Report 24078333 (Version 1)
Quarter: 2024Q3

REPORT INFORMATION
  Report Type: Spontaneous
  Country: FR (occurrence: FR)
  Receive Date: 20240711
  Receipt Date: 20240711
  Transmission Date: 20241017
  Serious: Yes (Other)
  Sender: PFIZER
  Company Number: None

PATIENT
  Age: 68 Year
  Sex: Female
  Weight: 63 kg

DRUGS (4)
  1. OXALIPLATIN [Suspect]
     Active Substance: OXALIPLATIN
     Indication: Adenocarcinoma gastric
     Dosage: FREQ:2 WK;
     Route: 042
     Dates: start: 20240129, end: 20240403
  2. FLUOROURACIL [Suspect]
     Active Substance: FLUOROURACIL
     Indication: Adenocarcinoma gastric
     Dosage: FREQ:2 WK;
     Route: 042
     Dates: start: 20240129
  3. FLUOROURACIL [Suspect]
     Active Substance: FLUOROURACIL
     Dosage: FREQ:2 WK;
     Route: 042
     Dates: start: 20240129
  4. OPDIVO [Suspect]
     Active Substance: NIVOLUMAB
     Indication: Adenocarcinoma gastric
     Dosage: FREQ:2 WK;
     Route: 042
     Dates: start: 20240129

REACTIONS (5)
  - Glucocorticoid deficiency [Not Recovered/Not Resolved]
  - Neuropathy peripheral [Not Recovered/Not Resolved]
  - Toxic erythema of chemotherapy [Not Recovered/Not Resolved]
  - Off label use [Unknown]
  - Off label use [Unknown]

NARRATIVE: CASE EVENT DATE: 20240129
